FAERS Safety Report 20359940 (Version 1)
Quarter: 2022Q1

REPORT INFORMATION
  Report Type: Spontaneous
  Country: US (occurrence: US)
  Receive Date: 20220121
  Receipt Date: 20220121
  Transmission Date: 20220423
  Serious: No
  Sender: FDA-Public Use
  Company Number: US-TERSERA THERAPEUTICS LLC-2021TRS005875

PATIENT

DRUGS (6)
  1. PRIALT [Suspect]
     Active Substance: ZICONOTIDE ACETATE
     Indication: Product used for unknown indication
     Dosage: UNK
     Route: 037
  2. PRIALT [Suspect]
     Active Substance: ZICONOTIDE ACETATE
     Dosage: DOSE INCREASED
     Route: 037
  3. FENTANYL [Suspect]
     Active Substance: FENTANYL
     Indication: Product used for unknown indication
     Dosage: 1154.115 MCG/DAY (CONCENTRATION: 5000 MCG)
     Route: 037
  4. FENTANYL [Suspect]
     Active Substance: FENTANYL
     Dosage: 1271.026 MCG/DAY (CONCENTRATION: 5000 MCG)
     Route: 037
  5. BUPIVACAINE [Suspect]
     Active Substance: BUPIVACAINE
     Indication: Product used for unknown indication
     Dosage: 6.924 MG/DAY (CONCENTRATION: 30 MG)
     Route: 037
  6. BUPIVACAINE [Suspect]
     Active Substance: BUPIVACAINE
     Dosage: 7.626 MG/DAY (CONCENTRATION: 30 MG)
     Route: 037

REACTIONS (3)
  - Pain [Recovered/Resolved]
  - Off label use [Unknown]
  - Drug ineffective [Unknown]
